FAERS Safety Report 13036538 (Version 3)
Quarter: 2017Q2

REPORT INFORMATION
  Report Type: Report from Study
  Country: JP (occurrence: JP)
  Receive Date: 20161216
  Receipt Date: 20170627
  Transmission Date: 20170830
  Serious: Yes (Death, Other)
  Sender: FDA-Public Use
  Company Number: JP-CELGENEUS-JPN-2016122573

PATIENT
  Age: 70 Year
  Sex: Male
  Weight: 47 kg

DRUGS (23)
  1. VIDAZA [Suspect]
     Active Substance: AZACITIDINE
     Dosage: 37.5MG/M2
     Route: 065
     Dates: start: 20121010, end: 20121018
  2. NICORANDIL [Concomitant]
     Active Substance: NICORANDIL
     Indication: PRODUCT USED FOR UNKNOWN INDICATION
     Route: 065
     Dates: start: 20121112
  3. VIDAZA [Suspect]
     Active Substance: AZACITIDINE
     Dosage: 75MG/M2
     Route: 065
     Dates: start: 20120516, end: 20120524
  4. VIDAZA [Suspect]
     Active Substance: AZACITIDINE
     Dosage: 50 MG
     Route: 065
     Dates: start: 20121114, end: 20121122
  5. VIDAZA [Suspect]
     Active Substance: AZACITIDINE
     Dosage: 50 MG
     Route: 065
     Dates: start: 20130109, end: 20130118
  6. FAMOTIDINE. [Concomitant]
     Active Substance: FAMOTIDINE
     Indication: PRODUCT USED FOR UNKNOWN INDICATION
     Route: 065
     Dates: start: 20120410
  7. CELECOXIB. [Concomitant]
     Active Substance: CELECOXIB
     Indication: PRODUCT USED FOR UNKNOWN INDICATION
     Route: 065
     Dates: start: 20120410
  8. VIDAZA [Suspect]
     Active Substance: AZACITIDINE
     Dosage: 50 MG
     Route: 065
     Dates: start: 20130306, end: 20130314
  9. CEFEPIME [Concomitant]
     Active Substance: CEFEPIME HYDROCHLORIDE
     Indication: PRODUCT USED FOR UNKNOWN INDICATION
     Route: 065
     Dates: start: 20120406, end: 20120412
  10. LOXOPROFEN SODIUM HYDRATE [Concomitant]
     Active Substance: LOXOPROFEN SODIUM DIHYDRATE
     Indication: PRODUCT USED FOR UNKNOWN INDICATION
     Route: 065
     Dates: end: 20120412
  11. VIDAZA [Suspect]
     Active Substance: AZACITIDINE
     Dosage: 37.5MG/M2
     Route: 065
     Dates: start: 20120627, end: 20120705
  12. VIDAZA [Suspect]
     Active Substance: AZACITIDINE
     Dosage: 37.5MG/M2
     Route: 065
     Dates: start: 20120905, end: 20120913
  13. BETAMETHASONE BUTYRATE PROPIONATE [Concomitant]
     Active Substance: BETAMETHASONE BUTYRATE PROPIONATE
     Indication: PRODUCT USED FOR UNKNOWN INDICATION
     Route: 065
     Dates: start: 20120413
  14. VIDAZA [Suspect]
     Active Substance: AZACITIDINE
     Dosage: 50 MG
     Route: 065
     Dates: start: 20130403, end: 20130411
  15. MAGNESIUM OXIDE. [Concomitant]
     Active Substance: MAGNESIUM OXIDE
     Indication: PRODUCT USED FOR UNKNOWN INDICATION
     Dosage: 500 MG
     Route: 048
     Dates: start: 20120410
  16. ISOSORBIDE MONONITRATE. [Concomitant]
     Active Substance: ISOSORBIDE MONONITRATE
     Indication: PRODUCT USED FOR UNKNOWN INDICATION
     Route: 065
     Dates: start: 20120925
  17. VIDAZA [Suspect]
     Active Substance: AZACITIDINE
     Dosage: 50 MG
     Route: 065
     Dates: start: 20121212, end: 20121220
  18. ASPIRIN. [Concomitant]
     Active Substance: ASPIRIN
     Indication: PRODUCT USED FOR UNKNOWN INDICATION
     Route: 065
     Dates: start: 20121012
  19. VIDAZA [Suspect]
     Active Substance: AZACITIDINE
     Dosage: 37.5MG/M2
     Route: 065
     Dates: start: 20120801, end: 20120809
  20. NITROGLYCERIN. [Concomitant]
     Active Substance: NITROGLYCERIN
     Indication: PRODUCT USED FOR UNKNOWN INDICATION
     Route: 065
     Dates: start: 20120910
  21. VIDAZA [Suspect]
     Active Substance: AZACITIDINE
     Indication: MYELODYSPLASTIC SYNDROME
     Dosage: 75MG/M2
     Route: 065
     Dates: start: 20120410, end: 20120416
  22. VIDAZA [Suspect]
     Active Substance: AZACITIDINE
     Dosage: 50 MG
     Route: 065
     Dates: start: 20130206, end: 20130215
  23. NIFEDIPINE. [Concomitant]
     Active Substance: NIFEDIPINE
     Indication: PRODUCT USED FOR UNKNOWN INDICATION
     Route: 065
     Dates: start: 20121029

REACTIONS (2)
  - Myelodysplastic syndrome [Fatal]
  - Angina unstable [Recovered/Resolved]

NARRATIVE: CASE EVENT DATE: 20120906
